FAERS Safety Report 5599906-X (Version None)
Quarter: 2008Q1

REPORT INFORMATION
  Report Type: 
  Country: None (occurrence: None)
  Receive Date: 20080123
  Receipt Date: 20080110
  Transmission Date: 20080703
  Serious: Yes (Hospitalization)
  Sender: FDA-Public Use
  Company Number: US-AMGEN-STX258588

PATIENT
  Sex: Female

DRUGS (9)
  1. ENBREL [Suspect]
  2. REMICADE [Concomitant]
     Route: 042
     Dates: start: 20040101
  3. CELEBREX [Concomitant]
     Route: 065
  4. FOSAMAX [Concomitant]
     Route: 065
  5. ZANTAC [Concomitant]
     Route: 065
  6. HALCION [Concomitant]
     Route: 065
  7. ATIVAN [Concomitant]
     Route: 065
  8. PROLIXAN [Concomitant]
     Route: 065
  9. METHADONE HCL [Concomitant]
     Route: 065

REACTIONS (6)
  - ARTHRALGIA [None]
  - CERVICAL SPINAL STENOSIS [None]
  - MUSCULOSKELETAL STIFFNESS [None]
  - OSTEOARTHRITIS [None]
  - PAIN IN EXTREMITY [None]
  - UPPER RESPIRATORY TRACT INFECTION [None]
